FAERS Safety Report 20114267 (Version 5)
Quarter: 2022Q3

REPORT INFORMATION
  Report Type: Report from Study
  Country: CN (occurrence: None)
  Receive Date: 20211125
  Receipt Date: 20220818
  Transmission Date: 20221026
  Serious: Yes (Hospitalization)
  Sender: FDA-Public Use
  Company Number: CN-ROCHE-2952029

PATIENT
  Age: 69 Year
  Sex: Female
  Weight: 59.1 kg

DRUGS (16)
  1. ATEZOLIZUMAB [Suspect]
     Active Substance: ATEZOLIZUMAB
     Indication: Hepatocellular carcinoma
     Dosage: THE DATE OF MOST RECENT DOSE PRIOR TO SAE OF ATEZOLIZUMAB WAS 27/OCT/2021?FORM: LIQUID
     Route: 041
     Dates: start: 20210802
  2. BEVACIZUMAB [Suspect]
     Active Substance: BEVACIZUMAB
     Indication: Hepatocellular carcinoma
     Dosage: FORM: LIQUID?THE DATE OF MOST RECENT DOSE PRIOR TO SAE OF BEVACIZUMAB WAS 27/OCT/2021
     Route: 042
     Dates: start: 20210802, end: 20211008
  3. EPIRUBICIN [Suspect]
     Active Substance: EPIRUBICIN
     Indication: Hepatocellular carcinoma
     Route: 065
     Dates: start: 20210714
  4. OMEPRAZOLE MAGNESIUM [Concomitant]
     Active Substance: OMEPRAZOLE MAGNESIUM
     Indication: Hypertension
  5. TEPRENONE [Concomitant]
     Active Substance: TEPRENONE
  6. HYDROTALCITE [Concomitant]
     Active Substance: HYDROTALCITE
  7. RABEPRAZOLE SODIUM [Concomitant]
     Active Substance: RABEPRAZOLE SODIUM
  8. NIFEDIPINE SUSTAINED RELEASE TABLETS (I) [Concomitant]
  9. METHYLPREDNISOLONE SODIUM SUCCINATE [Concomitant]
     Active Substance: METHYLPREDNISOLONE SODIUM SUCCINATE
     Route: 042
  10. DEXAMETHASONE SODIUM PHOSPHATE [Concomitant]
     Active Substance: DEXAMETHASONE SODIUM PHOSPHATE
     Route: 041
  11. PREDNISONE ACETATE [Concomitant]
     Active Substance: PREDNISONE ACETATE
     Route: 048
  12. MUCOPOLYSACCHARIDE POLYSULFATE [Concomitant]
     Dates: start: 20211214, end: 20211214
  13. OMEPRAZOLE [Concomitant]
     Active Substance: OMEPRAZOLE
     Dates: start: 20211210, end: 20211217
  14. MAGNESIUM ISOGLYCYRRHIZINATE [Concomitant]
     Active Substance: MAGNESIUM ISOGLYCYRRHIZINATE
     Dates: start: 20211210, end: 20211217
  15. INSULIN ASPART [Concomitant]
     Active Substance: INSULIN ASPART
     Dates: start: 20211211, end: 20211217
  16. ACARBOSE [Concomitant]
     Active Substance: ACARBOSE
     Dates: start: 20211211, end: 20211215

REACTIONS (1)
  - Immune-mediated lung disease [Recovering/Resolving]

NARRATIVE: CASE EVENT DATE: 20211009
